FAERS Safety Report 25466726 (Version 2)
Quarter: 2025Q3

REPORT INFORMATION
  Report Type: Report from Study
  Country: JP (occurrence: JP)
  Receive Date: 20250623
  Receipt Date: 20250716
  Transmission Date: 20251021
  Serious: No
  Sender: ALEXION PHARMACEUTICALS
  Company Number: JP-ASTRAZENECA-240066068_032420_P_1

PATIENT
  Age: 81 Year
  Sex: Female
  Weight: 45 kg

DRUGS (2)
  1. TEZEPELUMAB [Suspect]
     Active Substance: TEZEPELUMAB
     Indication: Asthma
  2. INDACATEROL ACETATE [Concomitant]
     Active Substance: INDACATEROL ACETATE
     Indication: Asthma
     Route: 065

REACTIONS (3)
  - Rash [Recovering/Resolving]
  - Defaecation disorder [Unknown]
  - Diaphragmalgia [Unknown]

NARRATIVE: CASE EVENT DATE: 20250501
